FAERS Safety Report 9758639 (Version 1)
Quarter: 2013Q4

REPORT INFORMATION
  Report Type: Spontaneous
  Country: US (occurrence: None)
  Receive Date: 20131216
  Receipt Date: 20131216
  Transmission Date: 20140711
  Serious: Yes (Hospitalization)
  Sender: FDA-Public Use
  Company Number: 1210USA001400

PATIENT
  Age: 88 Year
  Sex: Female

DRUGS (1)
  1. LOSARTAN POTASSIUM AND HYDROCHLOROTHIAZIDE TABLETS(LOSARTAN POTASSIUM(+) HYDROCHLOROTHIAZIDE) FILM-COATED TABLET [Suspect]
     Dosage: UNK

REACTIONS (2)
  - Chest pain [None]
  - Chest discomfort [None]
